FAERS Safety Report 7609622-8 (Version None)
Quarter: 2011Q3

REPORT INFORMATION
  Report Type: 
  Country: None (occurrence: None)
  Receive Date: 20110714
  Receipt Date: 20110704
  Transmission Date: 20111222
  Serious: Yes (Other)
  Sender: FDA-Public Use
  Company Number: PHHY2010JP20988

PATIENT
  Sex: Male

DRUGS (2)
  1. VESICARE [Interacting]
     Dosage: 10 MG, UNK
     Route: 048
     Dates: end: 20100401
  2. GLEEVEC [Suspect]
     Indication: GASTROINTESTINAL STROMAL TUMOUR
     Dosage: 400 MG, DAILY
     Route: 048
     Dates: start: 20100303

REACTIONS (2)
  - BLOOD CHOLINESTERASE DECREASED [None]
  - DRUG INTERACTION [None]
